FAERS Safety Report 7631998-6 (Version None)
Quarter: 2011Q3

REPORT INFORMATION
  Report Type: 
  Country: None (occurrence: None)
  Receive Date: 20110725
  Receipt Date: 20110521
  Transmission Date: 20111222
  Serious: No
  Sender: FDA-Public Use
  Company Number: US-BRISTOL-MYERS SQUIBB COMPANY-15765936

PATIENT
  Age: 58 Year
  Sex: Female
  Weight: 88 kg

DRUGS (12)
  1. VITAMIN D [Concomitant]
     Dosage: 1DF: VITAMIN D 50,000 UNITS 1 CAPSULE EVERY 2 WEEKS.
  2. EXTRA STRENGTH TYLENOL PM [Concomitant]
  3. FLOVENT [Concomitant]
  4. COUMADIN [Suspect]
     Indication: THROMBOSIS
     Dosage: DISCONTINUED ON 15MAY11, RESTARTED ON 21MAY11. COUMADIN 5 MG MONDAY THROUGH THURSDAY
  5. LOVAZA [Concomitant]
  6. ZANTAC [Concomitant]
     Dosage: 150 MG THREE TABLETS DAILY,
  7. SYNTHROID [Concomitant]
  8. XOPENEX [Concomitant]
  9. CITRACAL + D [Concomitant]
  10. METOPROLOL TARTRATE [Concomitant]
  11. PHENAZOPYRIDINE HCL TAB [Concomitant]
  12. PANTHENOL [Concomitant]

REACTIONS (1)
  - ASTHENIA [None]
